FAERS Safety Report 20030458 (Version 1)
Quarter: 2021Q4

REPORT INFORMATION
  Report Type: Spontaneous
  Country: US (occurrence: US)
  Receive Date: 20211103
  Receipt Date: 20211103
  Transmission Date: 20220303
  Serious: Yes (Other)
  Sender: FDA-Public Use
  Company Number: US-BoehringerIngelheim-2021-BI-135112

PATIENT
  Sex: Female

DRUGS (3)
  1. OFEV [Suspect]
     Active Substance: NINTEDANIB
     Indication: Interstitial lung disease
  2. OFEV [Suspect]
     Active Substance: NINTEDANIB
  3. OFEV [Suspect]
     Active Substance: NINTEDANIB

REACTIONS (4)
  - Interstitial lung disease [Unknown]
  - Pneumonia [Unknown]
  - Hepatic enzyme increased [Unknown]
  - Nausea [Unknown]
